FAERS Safety Report 24189934 (Version 1)
Quarter: 2024Q3

REPORT INFORMATION
  Report Type: Spontaneous
  Country: US (occurrence: US)
  Receive Date: 20240808
  Receipt Date: 20240808
  Transmission Date: 20241017
  Serious: No
  Sender: BIOVITRUM
  Company Number: US-BIOVITRUM-2024-US-009477

PATIENT
  Age: 77 Year
  Sex: Male

DRUGS (1)
  1. VONJO [Suspect]
     Active Substance: PACRITINIB
     Indication: Myeloproliferative neoplasm
     Dosage: TAKE 2 CAPSULES TWICE DAILY. TOTALS DOSE (200MG)
     Route: 048
     Dates: start: 20240504

REACTIONS (3)
  - Intentional product misuse [Not Recovered/Not Resolved]
  - Diarrhoea [Unknown]
  - Faeces discoloured [Unknown]

NARRATIVE: CASE EVENT DATE: 20240504
